FAERS Safety Report 23090435 (Version 2)
Quarter: 2023Q4

REPORT INFORMATION
  Report Type: Report from Study
  Country: US (occurrence: US)
  Receive Date: 20231020
  Receipt Date: 20231117
  Transmission Date: 20240110
  Serious: Yes (Death)
  Sender: FDA-Public Use
  Company Number: US-PFIZER INC-PV202300171849

PATIENT

DRUGS (2)
  1. SUNITINIB MALATE [Suspect]
     Active Substance: SUNITINIB MALATE
     Indication: Renal cell carcinoma
     Dosage: ON DAYS 1 THROUGH 14 AND ON DAYS 22 THROUGH 35 OF EACH CYCLE
  2. GEMCITABINE HYDROCHLORIDE [Suspect]
     Active Substance: GEMCITABINE HYDROCHLORIDE
     Indication: Renal cell carcinoma
     Dosage: OVER 30 MINUTES ON DAYS 1, 8, 22, AND 29 OF EACH CYCLE
     Route: 042

REACTIONS (1)
  - Multiple organ dysfunction syndrome [Fatal]
